FAERS Safety Report 5953061-2 (Version None)
Quarter: 2008Q4

REPORT INFORMATION
  Report Type: 
  Country: None (occurrence: None)
  Receive Date: 20081114
  Receipt Date: 20081106
  Transmission Date: 20090506
  Serious: Yes (Other)
  Sender: FDA-Public Use
  Company Number: FR-BAYER-200830081GPV

PATIENT
  Age: 57 Year
  Sex: Male

DRUGS (6)
  1. SORAFENIB [Suspect]
     Indication: METASTASES TO ADRENALS
     Route: 065
  2. SORAFENIB [Suspect]
     Route: 065
  3. SUNITINIB [Concomitant]
     Indication: METASTASES TO LUNG
     Route: 065
     Dates: start: 20070801
  4. CORTICOSTEROIDS [Concomitant]
     Indication: ENTEROCOLITIS HAEMORRHAGIC
     Route: 048
  5. 5-AMINOSALICYLATES [Concomitant]
     Indication: ENTEROCOLITIS HAEMORRHAGIC
     Route: 065
  6. MESALAMINE [Concomitant]
     Indication: ENTEROCOLITIS HAEMORRHAGIC
     Route: 065
     Dates: start: 20070101

REACTIONS (3)
  - ENTEROCOLITIS HAEMORRHAGIC [None]
  - HAEMATOCHEZIA [None]
  - PALMAR-PLANTAR ERYTHRODYSAESTHESIA SYNDROME [None]
